FAERS Safety Report 8836555 (Version 1)
Quarter: 2012Q4

REPORT INFORMATION
  Report Type: Spontaneous
  Country: US (occurrence: None)
  Receive Date: 20121009
  Receipt Date: 20121009
  Transmission Date: 20130627
  Serious: Yes (Hospitalization, Other)
  Sender: FDA-Public Use
  Company Number: 2012MA011741

PATIENT
  Age: 33 Year
  Sex: Male

DRUGS (5)
  1. NAPROXEN [Suspect]
     Indication: MIGRAINE HEADACHE
  2. PENCILLIN [Concomitant]
  3. SULFA [Concomitant]
  4. IBUPROFEN [Concomitant]
  5. ASPIRIN [Concomitant]

REACTIONS (8)
  - Rash maculo-papular [None]
  - Rash pruritic [None]
  - Dizziness [None]
  - Chest pain [None]
  - Troponin increased [None]
  - Electrocardiogram ST segment elevation [None]
  - Electrocardiogram ST segment depression [None]
  - Blood immunoglobulin E increased [None]
